FAERS Safety Report 5149465-0 (Version None)
Quarter: 2006Q4

REPORT INFORMATION
  Report Type: 
  Country: None (occurrence: None)
  Receive Date: 20061113
  Receipt Date: 20060131
  Transmission Date: 20070319
  Serious: No
  Sender: FDA-Public Use
  Company Number: 434983

PATIENT
  Age: 82 Year
  Sex: Male

DRUGS (2)
  1. COREG [Suspect]
     Route: 048
     Dates: start: 20051209
  2. NO CONCURRENT MEDICATION [Concomitant]

REACTIONS (1)
  - ANOREXIA [None]
